FAERS Safety Report 4923396-0 (Version None)
Quarter: 2006Q1

REPORT INFORMATION
  Report Type: 
  Country: None (occurrence: None)
  Receive Date: 20060223
  Receipt Date: 20060223
  Transmission Date: 20060701
  Serious: Yes (Life-Threatening, Other)
  Sender: FDA-Public Use
  Company Number: None

PATIENT
  Sex: Male
  Weight: 105.2345 kg

DRUGS (2)
  1. CLOZARIL [Suspect]
     Indication: MILD MENTAL RETARDATION
     Dosage: 1 TID
     Dates: start: 19990824, end: 20060131
  2. CLOZARIL [Suspect]
     Indication: SCHIZOPHRENIA
     Dosage: 1 TID
     Dates: start: 19990824, end: 20060131

REACTIONS (2)
  - CONVULSION [None]
  - CONVULSIVE THRESHOLD LOWERED [None]
